FAERS Safety Report 5160676-0 (Version None)
Quarter: 2006Q4

REPORT INFORMATION
  Report Type: 
  Country: None (occurrence: None)
  Receive Date: 20061121
  Receipt Date: 20061106
  Transmission Date: 20070319
  Serious: Yes (Death)
  Sender: FDA-Public Use
  Company Number: 232193

PATIENT
  Age: 73 Year
  Sex: Male

DRUGS (6)
  1. AVASTIN [Suspect]
     Indication: ADENOCARCINOMA PANCREAS
     Dosage: 10 MG/KG, INTRAVENOUS
     Route: 042
     Dates: start: 20060909
  2. GEMCITABINE [Suspect]
     Indication: ADENOCARCINOMA PANCREAS
     Dosage: 400 MG/M2, INTRAVENOUS
     Route: 042
     Dates: start: 20060909
  3. ZOFRAN ODT (ONDANSETRON) [Concomitant]
  4. LIPITOR [Concomitant]
  5. METOPROLOL TARTRATE [Concomitant]
  6. NEXIUM [Concomitant]

REACTIONS (4)
  - CARDIAC ARREST [None]
  - MALAISE [None]
  - PULMONARY EMBOLISM [None]
  - VOMITING [None]
